FAERS Safety Report 8955955 (Version 2)
Quarter: 2013Q1

REPORT INFORMATION
  Report Type: Spontaneous
  Country: US (occurrence: US)
  Receive Date: 20121210
  Receipt Date: 20130102
  Transmission Date: 20140127
  Serious: No
  Sender: FDA-Public Use
  Company Number: US-009507513-1212USA001773

PATIENT
  Age: 58 Year
  Sex: Male

DRUGS (7)
  1. VICTRELIS [Suspect]
     Indication: HEPATITIS C
     Dosage: 200 MG, TID
     Route: 048
     Dates: start: 20121011
  2. PEGASYS [Concomitant]
  3. RIBASPHERE [Concomitant]
  4. PRILOSEC [Concomitant]
  5. ZYRTEC [Concomitant]
  6. VITAMINS (UNSPECIFIED) [Concomitant]
  7. MAGNEBIND [Concomitant]

REACTIONS (1)
  - Fatigue [Unknown]
